FAERS Safety Report 7510780-4 (Version None)
Quarter: 2011Q2

REPORT INFORMATION
  Report Type: 
  Country: None (occurrence: None)
  Receive Date: 20110530
  Receipt Date: 20110516
  Transmission Date: 20111010
  Serious: Yes (Other)
  Sender: FDA-Public Use
  Company Number: PHHY2011US24151

PATIENT
  Sex: Female
  Weight: 86.168 kg

DRUGS (9)
  1. ASPIRIN [Concomitant]
     Dosage: QD
  2. LOSARTAN POTASSIUM [Suspect]
     Dosage: 25 MG, QD
  3. CALCIUM CARBONATE [Concomitant]
     Dosage: 1000 MG, UNK
  4. FISH OIL [Concomitant]
     Dosage: UNK
  5. TRIAMTERENE [Suspect]
     Dosage: 37.5 MG, QD
  6. MULTI-VITAMINS [Concomitant]
  7. GABAPENTIN [Concomitant]
  8. DIOVAN [Suspect]
     Indication: HYPERTENSION
     Dosage: 80 MG DAILY
     Route: 048
     Dates: start: 20070401, end: 20110301
  9. VENLAFAXINE [Concomitant]
     Dosage: 37.5 MG, UNK

REACTIONS (3)
  - CATARACT [None]
  - NAUSEA [None]
  - DIZZINESS [None]
